FAERS Safety Report 10330936 (Version 2)
Quarter: 2014Q4

REPORT INFORMATION
  Report Type: Report from Study
  Country: US (occurrence: US)
  Receive Date: 20140722
  Receipt Date: 20141010
  Transmission Date: 20150528
  Serious: Yes (Other)
  Sender: FDA-Public Use
  Company Number: US-AMGEN-USASP2014053842

PATIENT
  Age: 58 Year
  Sex: Female

DRUGS (2)
  1. ENBREL [Suspect]
     Active Substance: ETANERCEPT
     Indication: PSORIASIS
  2. ENBREL [Suspect]
     Active Substance: ETANERCEPT
     Indication: PSORIATIC ARTHROPATHY
     Dosage: 50 MG, QWK
     Route: 065
     Dates: start: 20140623, end: 201408

REACTIONS (17)
  - Psoriatic arthropathy [Not Recovered/Not Resolved]
  - Pain in extremity [Not Recovered/Not Resolved]
  - Psoriasis [Recovered/Resolved]
  - Contusion [Unknown]
  - Musculoskeletal pain [Not Recovered/Not Resolved]
  - Oropharyngeal pain [Not Recovered/Not Resolved]
  - Skin discolouration [Recovered/Resolved]
  - Injection site bruising [Unknown]
  - Drug ineffective [Not Recovered/Not Resolved]
  - Swelling [Recovered/Resolved]
  - Dyspnoea [Not Recovered/Not Resolved]
  - Hot flush [Not Recovered/Not Resolved]
  - Oral pain [Not Recovered/Not Resolved]
  - Pyrexia [Recovered/Resolved]
  - Back pain [Not Recovered/Not Resolved]
  - Rash macular [Unknown]
  - Feeling hot [Unknown]

NARRATIVE: CASE EVENT DATE: 2014
